FAERS Safety Report 4827500-4 (Version None)
Quarter: 2005Q4

REPORT INFORMATION
  Report Type: 
  Country: None (occurrence: None)
  Receive Date: 20051114
  Receipt Date: 20051012
  Transmission Date: 20060501
  Serious: Yes (Hospitalization)
  Sender: FDA-Public Use
  Company Number: PHBS2005GR15042

PATIENT
  Age: 42 Year
  Sex: Female

DRUGS (3)
  1. LEPONEX [Suspect]
     Route: 048
  2. HALOPERIDOL [Concomitant]
     Route: 065
  3. KINETON [Concomitant]
     Route: 065

REACTIONS (3)
  - LEUKOPENIA [None]
  - PYREXIA [None]
  - RESPIRATORY TRACT INFECTION [None]
